FAERS Safety Report 20103657 (Version 1)
Quarter: 2021Q4

REPORT INFORMATION
  Report Type: Spontaneous
  Country: US (occurrence: US)
  Receive Date: 20211123
  Receipt Date: 20211123
  Transmission Date: 20220303
  Serious: No
  Sender: FDA-Public Use
  Company Number: US-Millicent Holdings Ltd.-MILL20210929

PATIENT
  Age: 61 Year
  Sex: Female

DRUGS (1)
  1. INTRAROSA [Suspect]
     Active Substance: PRASTERONE
     Indication: Product used for unknown indication
     Dosage: UNKNOWN
     Route: 067

REACTIONS (4)
  - Poor quality product administered [Unknown]
  - Product packaging difficult to open [Unknown]
  - Product physical issue [Unknown]
  - Product packaging issue [Unknown]
